FAERS Safety Report 18184382 (Version 1)
Quarter: 2020Q3

REPORT INFORMATION
  Report Type: Spontaneous
  Country: FR (occurrence: FR)
  Receive Date: 20200824
  Receipt Date: 20200824
  Transmission Date: 20201103
  Serious: Yes (Hospitalization)
  Sender: FDA-Public Use
  Company Number: FR-ACCORD-196792

PATIENT
  Age: 63 Year
  Sex: Female
  Weight: 109.8 kg

DRUGS (12)
  1. OXYCONTIN [Concomitant]
     Active Substance: OXYCODONE HYDROCHLORIDE
     Dosage: STRENGTH: 40 MG, PROLONGED?RELEASE FILM?COATED TABLET
  2. DUOPLAVIN [Concomitant]
     Active Substance: ASPIRIN\CLOPIDOGREL
  3. THALIDOMIDE CELGENE [Suspect]
     Active Substance: THALIDOMIDE
     Indication: PLASMA CELL MYELOMA
     Dosage: STRENGTH: 50 MG
     Route: 048
     Dates: start: 20170901, end: 20171222
  4. MOPRAL [Concomitant]
     Active Substance: OMEPRAZOLE
  5. ALLOPURINOL. [Suspect]
     Active Substance: ALLOPURINOL
     Indication: PRODUCT USED FOR UNKNOWN INDICATION
  6. BORTEZOMIB EG [BORTEZOMIB] [Suspect]
     Active Substance: BORTEZOMIB
     Indication: PLASMA CELL MYELOMA
     Dosage: STRENGTH: 2.5 MG / ML
     Route: 058
     Dates: start: 20170901, end: 20171222
  7. CRESTOR [Concomitant]
     Active Substance: ROSUVASTATIN CALCIUM
     Dosage: STRENGTH: 10 MG
  8. FUROSEMIDE. [Concomitant]
     Active Substance: FUROSEMIDE
  9. DIFFU K [Concomitant]
     Active Substance: POTASSIUM CHLORIDE
  10. NEOFORDEX [Suspect]
     Active Substance: DEXAMETHASONE ACETATE
     Indication: PLASMA CELL MYELOMA
     Dosage: STRENGTH: 40 MG
     Route: 048
     Dates: start: 20170901, end: 20171222
  11. OXYNORM [Concomitant]
     Active Substance: OXYCODONE HYDROCHLORIDE
  12. PERINDOPRIL [Concomitant]
     Active Substance: PERINDOPRIL

REACTIONS (3)
  - Venous thrombosis [Recovered/Resolved]
  - Rash [Recovered/Resolved]
  - Oedema peripheral [Not Recovered/Not Resolved]

NARRATIVE: CASE EVENT DATE: 201709
